FAERS Safety Report 21236041 (Version 2)
Quarter: 2022Q4

REPORT INFORMATION
  Report Type: Spontaneous
  Country: US (occurrence: US)
  Receive Date: 20220822
  Receipt Date: 20221109
  Transmission Date: 20230112
  Serious: No
  Sender: FDA-Public Use
  Company Number: US-BRISTOL-MYERS SQUIBB COMPANY-2022-091149

PATIENT
  Age: 83 Year
  Sex: Female
  Weight: 74.8 kg

DRUGS (3)
  1. ELIQUIS [Suspect]
     Active Substance: APIXABAN
     Indication: Cerebrovascular accident prophylaxis
     Route: 048
     Dates: start: 20211106
  2. ELIQUIS [Suspect]
     Active Substance: APIXABAN
     Route: 048
     Dates: start: 20220714
  3. ELIQUIS [Suspect]
     Active Substance: APIXABAN
     Dosage: MDO LOWERING ELIQUIS DOSAGE.
     Route: 048

REACTIONS (2)
  - Intentional product use issue [Unknown]
  - Epistaxis [Recovering/Resolving]
